FAERS Safety Report 5533958-8 (Version None)
Quarter: 2007Q4

REPORT INFORMATION
  Report Type: 
  Country: None (occurrence: None)
  Receive Date: 20071129
  Receipt Date: 20071120
  Transmission Date: 20080405
  Serious: Yes (Other)
  Sender: FDA-Public Use
  Company Number: 17878

PATIENT
  Age: 12 Year
  Sex: Male

DRUGS (3)
  1. BLEOMYCIN [Suspect]
     Indication: CRANIOPHARYNGIOMA
     Dosage: 3 MG 3/WK OTHER
     Route: 050
  2. BLEOMYCIN [Suspect]
     Indication: CRANIOPHARYNGIOMA
     Dosage: 3 MG WEEKLY OTHER
     Route: 048
  3. SODIUM CHLORIDE [Concomitant]

REACTIONS (3)
  - CEREBRAL CYST [None]
  - DEVICE LEAKAGE [None]
  - OEDEMA [None]
